FAERS Safety Report 7463245-2 (Version None)
Quarter: 2011Q2

REPORT INFORMATION
  Report Type: 
  Country: None (occurrence: None)
  Receive Date: 20110506
  Receipt Date: 20110428
  Transmission Date: 20111010
  Serious: Yes (Other)
  Sender: FDA-Public Use
  Company Number: CH-ROCHE-774155

PATIENT
  Age: 69 Year
  Sex: Female

DRUGS (3)
  1. METOPROLOL SUCCINATE [Concomitant]
     Dosage: THE DOSAGES HAVE NOT BEEN MODIFIED RECENTLY.
  2. HERCEPTIN [Suspect]
     Dosage: DRUG WITHDRAWN
     Route: 042
     Dates: start: 20080101, end: 20110405
  3. ESOMEPRAZOLE [Concomitant]
     Dosage: THE DOSAGES HAVE NOT BEEN MODIFIED RECENTLY.

REACTIONS (2)
  - HYPOACUSIS [None]
  - OTITIS MEDIA [None]
